FAERS Safety Report 9305757 (Version 1)
Quarter: 2013Q2

REPORT INFORMATION
  Report Type: Spontaneous
  Country: DE (occurrence: None)
  Receive Date: 20130514
  Receipt Date: 20130514
  Transmission Date: 20140414
  Serious: Yes (Other)
  Sender: FDA-Public Use
  Company Number: 2013035944

PATIENT
  Age: 40 Year
  Sex: Male

DRUGS (1)
  1. PRIVIGEN (IMMUNE GLOBULIN INTRAVENOUS (HUMAN) 10% LIQUID) [Suspect]
     Indication: GUILLAIN-BARRE SYNDROME
     Dosage: 30 G, 10 G,/100 ML INFUSION SOLUTION
     Route: 042

REACTIONS (3)
  - Hypersensitivity [None]
  - Respiratory distress [None]
  - Rash [None]
